FAERS Safety Report 7660312-5 (Version None)
Quarter: 2011Q3

REPORT INFORMATION
  Report Type: 
  Country: None (occurrence: None)
  Receive Date: 20110805
  Receipt Date: 20110803
  Transmission Date: 20111222
  Serious: Yes (Death, Life-Threatening, Hospitalization)
  Sender: FDA-Public Use
  Company Number: US-B.I. PHARMACEUTICALS,INC./RIDGEFIELD-2011-BP-17634BP

PATIENT
  Sex: Female

DRUGS (10)
  1. GEMFIBROZIL [Concomitant]
     Dosage: 1200 MG
     Route: 048
  2. GLIPIZIDE [Concomitant]
     Dosage: 20 MG
     Route: 048
  3. CARVEDILOL [Concomitant]
     Dosage: 100 MG
     Route: 048
  4. DIGOXIN [Concomitant]
     Dosage: 250 MCG
     Route: 048
  5. PRAZOSIN HCL [Concomitant]
     Dosage: 2 MG
     Route: 048
  6. LASIX [Concomitant]
     Dosage: 20 MG
     Route: 048
  7. POTASSIUM CHLORIDE [Concomitant]
     Dosage: 40 MEQ
     Route: 048
  8. PRADAXA [Suspect]
     Indication: ATRIAL FIBRILLATION
     Dosage: 300 MG
     Route: 048
     Dates: start: 20110527, end: 20110624
  9. JANUMET [Concomitant]
     Route: 048
  10. FERROUS SULFATE TAB [Concomitant]
     Dosage: 650 MG
     Route: 048

REACTIONS (7)
  - VAGINAL HAEMORRHAGE [None]
  - ANAEMIA [None]
  - DEATH [None]
  - RECTAL HAEMORRHAGE [None]
  - GASTROINTESTINAL HAEMORRHAGE [None]
  - RENAL FAILURE [None]
  - HAEMATOCHEZIA [None]
